FAERS Safety Report 14274077 (Version 1)
Quarter: 2017Q4

REPORT INFORMATION
  Report Type: Spontaneous
  Country: BR (occurrence: BR)
  Receive Date: 20171211
  Receipt Date: 20171211
  Transmission Date: 20180321
  Serious: Yes (Hospitalization)
  Sender: FDA-Public Use
  Company Number: BR-OTSUKA-DJ20092341

PATIENT
  Age: 24 Year
  Sex: Male
  Weight: 92 kg

DRUGS (2)
  1. ABILIFY [Suspect]
     Active Substance: ARIPIPRAZOLE
     Indication: PRODUCT USED FOR UNKNOWN INDICATION
     Dosage: 15 MG, UNK
     Route: 048
  2. ABILIFY [Suspect]
     Active Substance: ARIPIPRAZOLE
     Route: 048

REACTIONS (13)
  - Weight increased [Unknown]
  - Eosinophil count decreased [Unknown]
  - Tachycardia [Unknown]
  - Peripheral coldness [Unknown]
  - Extrapyramidal disorder [Recovering/Resolving]
  - Palpitations [Unknown]
  - Diarrhoea [Unknown]
  - Tremor [Unknown]
  - Agitation [Unknown]
  - Hypertension [Unknown]
  - Red blood cell count increased [Not Recovered/Not Resolved]
  - Aggression [Unknown]
  - Apathy [Unknown]

NARRATIVE: CASE EVENT DATE: 2009
